FAERS Safety Report 5849561-6 (Version None)
Quarter: 2008Q3

REPORT INFORMATION
  Report Type: 
  Country: None (occurrence: None)
  Receive Date: 20080819
  Receipt Date: 20080808
  Transmission Date: 20090109
  Serious: Yes (Hospitalization)
  Sender: FDA-Public Use
  Company Number: US-JNJFOC-20080405198

PATIENT
  Sex: Female

DRUGS (21)
  1. REMICADE [Suspect]
     Route: 042
  2. REMICADE [Suspect]
     Indication: RHEUMATOID ARTHRITIS
     Route: 042
  3. METHOTREXATE [Concomitant]
     Indication: RHEUMATOID ARTHRITIS
     Route: 050
  4. PREDNISONE TAB [Concomitant]
     Indication: RHEUMATOID ARTHRITIS
  5. BAXTER [Concomitant]
  6. XANAX [Concomitant]
  7. AMBIEN [Concomitant]
  8. NEXIUM [Concomitant]
  9. PREMARIN [Concomitant]
  10. EFFEXOR XR [Concomitant]
  11. ZETIA [Concomitant]
  12. HYDROCHLOROTHIAZIDE [Concomitant]
  13. COREG [Concomitant]
  14. LOTREL [Concomitant]
  15. LOTREL [Concomitant]
  16. CARAFATE [Concomitant]
  17. CLARINEX [Concomitant]
  18. SALAGEN [Concomitant]
  19. TRICOR [Concomitant]
  20. VICODIN [Concomitant]
  21. FOLIC ACID [Concomitant]

REACTIONS (9)
  - AORTIC STENOSIS [None]
  - CARDIAC FAILURE CONGESTIVE [None]
  - FRACTURE NONUNION [None]
  - HYPOKALAEMIA [None]
  - LEFT VENTRICULAR HYPERTROPHY [None]
  - MITRAL VALVE STENOSIS [None]
  - PLEURAL EFFUSION [None]
  - PNEUMONIA [None]
  - VULVOVAGINAL MYCOTIC INFECTION [None]
